FAERS Safety Report 18880903 (Version 1)
Quarter: 2021Q1

REPORT INFORMATION
  Report Type: Report from Study
  Country: None (occurrence: US)
  Receive Date: 20210212
  Receipt Date: 20210212
  Transmission Date: 20210420
  Serious: Yes (Other)
  Sender: FDA-Public Use
  Company Number: US-ABBVIE-21K-163-3765708-00

PATIENT
  Age: 46 Year
  Sex: Female

DRUGS (1)
  1. HUMIRA [Suspect]
     Active Substance: ADALIMUMAB
     Indication: RHEUMATOID ARTHRITIS
     Route: 058
     Dates: start: 20210128

REACTIONS (6)
  - Depression [Unknown]
  - Systemic lupus erythematosus [Unknown]
  - Anxiety [Unknown]
  - Pain [Unknown]
  - Hypothyroidism [Unknown]
  - Uveitis [Unknown]

NARRATIVE: CASE EVENT DATE: 2021
